FAERS Safety Report 5337103-3 (Version None)
Quarter: 2007Q2

REPORT INFORMATION
  Report Type: 
  Country: None (occurrence: None)
  Receive Date: 20070529
  Receipt Date: 20070517
  Transmission Date: 20071010
  Serious: Yes (Hospitalization)
  Sender: FDA-Public Use
  Company Number: JP-ASTRAZENECA-2007AP02483

PATIENT
  Age: 45 Year
  Sex: Female
  Weight: 40 kg

DRUGS (3)
  1. MARCAINE [Suspect]
     Indication: SPINAL ANAESTHESIA
     Route: 037
     Dates: start: 20070423, end: 20070423
  2. DORMICUM [Concomitant]
     Route: 042
     Dates: start: 20070423, end: 20070423
  3. HOMOCLOMIN [Concomitant]
     Route: 048

REACTIONS (1)
  - CAUDA EQUINA SYNDROME [None]
